FAERS Safety Report 9742475 (Version 2)
Quarter: 2014Q2

REPORT INFORMATION
  Report Type: Report from Study
  Country: US (occurrence: US)
  Receive Date: 20131210
  Receipt Date: 20140515
  Transmission Date: 20141212
  Serious: Yes (Hospitalization, Other)
  Sender: FDA-Public Use
  Company Number: US-ALEXION PHARMACEUTICALS INC.-A201303784

PATIENT
  Sex: 0

DRUGS (12)
  1. SOLIRIS [Suspect]
     Indication: HAEMOLYTIC URAEMIC SYNDROME
     Dosage: 1200 MG, Q2W
     Route: 042
     Dates: start: 20121207
  2. AMOXICILLIN [Concomitant]
     Indication: PROPHYLAXIS
     Dosage: UNK
     Route: 048
  3. DILTIAZEM [Concomitant]
     Indication: HYPERTENSION
     Dosage: 180 MG, QD
     Route: 065
     Dates: start: 20120104
  4. FOLIC ACID [Concomitant]
     Indication: PRODUCT USED FOR UNKNOWN INDICATION
     Dosage: 1 MG, QD
     Route: 065
     Dates: start: 20120104
  5. HYDRALAZINE [Concomitant]
     Indication: HYPERTENSION
     Dosage: 25 MG, EVERY 8 HOURS
     Route: 065
  6. ISOSORBIDE [Concomitant]
     Indication: HYPERTENSION
     Dosage: 30 MG, QD
     Route: 065
     Dates: start: 20120104
  7. LANSOPRAZOLE [Concomitant]
     Indication: GASTROOESOPHAGEAL REFLUX DISEASE
     Dosage: 30 MG, QD
     Route: 065
     Dates: start: 20120104
  8. METOPROLOL [Concomitant]
     Indication: HYPERTENSION
     Dosage: 50 MG, BID
     Route: 065
     Dates: start: 20120104
  9. RENAL CAP [Concomitant]
     Indication: PRODUCT USED FOR UNKNOWN INDICATION
     Dosage: 1 DF, QD
     Route: 065
     Dates: start: 20120104
  10. RENVELA [Concomitant]
     Indication: BLOOD PHOSPHORUS DECREASED
     Dosage: 3 W/LGMEAL
     Route: 065
     Dates: start: 20120104
  11. SENSIPAR [Concomitant]
     Indication: RENAL FAILURE CHRONIC
     Dosage: 30 MG, QD
     Route: 065
     Dates: start: 20120104
  12. PROGRAF [Concomitant]
     Indication: IMMUNOSUPPRESSANT DRUG THERAPY
     Dosage: 3 MG, Q12H
     Route: 065
     Dates: start: 20121204

REACTIONS (3)
  - Transplant failure [Not Recovered/Not Resolved]
  - Viral infection [Recovered/Resolved]
  - Treatment noncompliance [Not Recovered/Not Resolved]
